FAERS Safety Report 15155905 (Version 1)
Quarter: 2018Q3

REPORT INFORMATION
  Report Type: Spontaneous
  Country: AT (occurrence: AT)
  Receive Date: 20180717
  Receipt Date: 20180717
  Transmission Date: 20181010
  Serious: Yes (Other)
  Sender: FDA-Public Use
  Company Number: AT-US WORLDMEDS, LLC-STA_00019610

PATIENT
  Sex: Male

DRUGS (1)
  1. APOMORPHINE HYDROCHLORIDE [Suspect]
     Active Substance: APOMORPHINE HYDROCHLORIDE
     Indication: PARKINSON^S DISEASE
     Route: 058
     Dates: start: 20121114, end: 20130308

REACTIONS (5)
  - Somnolence [Recovered/Resolved]
  - Sleep attacks [Recovered/Resolved]
  - Fall [Recovered/Resolved]
  - Oedema peripheral [Recovered/Resolved]
  - Weight increased [Unknown]
